FAERS Safety Report 7282710-4 (Version None)
Quarter: 2011Q1

REPORT INFORMATION
  Report Type: 
  Country: None (occurrence: None)
  Receive Date: 20110128
  Receipt Date: 20110112
  Transmission Date: 20110831
  Serious: Yes (Death)
  Sender: FDA-Public Use
  Company Number: COM11-0059

PATIENT
  Age: 53 Year
  Sex: Male

DRUGS (5)
  1. PARENTERAL B-12 [Concomitant]
  2. TESTOSTERONE [Concomitant]
  3. NEURONTIN [Concomitant]
  4. OXYCODONE 30MG (QUALITEST) [Suspect]
     Indication: BACK PAIN
     Dosage: PO QID
     Dates: start: 20101130, end: 20101207
  5. PRISTIQ [Concomitant]

REACTIONS (1)
  - DEATH [None]
